FAERS Safety Report 8538040-3 (Version None)
Quarter: 2012Q3

REPORT INFORMATION
  Report Type: 
  Country: None (occurrence: None)
  Receive Date: 20120725
  Receipt Date: 20120712
  Transmission Date: 20120928
  Serious: Yes (Hospitalization, Other)
  Sender: FDA-Public Use
  Company Number: US-PFIZER INC-2012165078

PATIENT
  Sex: Female
  Weight: 56.236 kg

DRUGS (38)
  1. LIPITOR [Suspect]
     Indication: HYPERLIPIDAEMIA
     Dosage: 40 MG, 1 IN 1 D
     Route: 048
     Dates: end: 20120101
  2. CINRYZE [Suspect]
     Indication: HEREDITARY ANGIOEDEMA
     Dosage: 1000 UNIT , 3X/WEEK
     Route: 042
     Dates: start: 20100101
  3. DIPHENHYDRAMINE [Concomitant]
     Dosage: 25 MG, 1 IN 1 D
     Route: 048
  4. FOSAMAX [Concomitant]
     Indication: OSTEOPOROSIS
     Dosage: 70 MG, WEEKLY
  5. KALBITOR [Concomitant]
     Indication: HEREDITARY ANGIOEDEMA
     Dosage: 30 MG, UNK
     Route: 058
  6. DILANTIN [Concomitant]
     Dosage: 100 MG AM/400 MG PM
     Dates: start: 20120605
  7. ATENOLOL [Concomitant]
     Indication: HYPERTENSION
     Dosage: 50 MG, 1 IN 1 D
     Route: 048
  8. NORTRIPTYLINE [Concomitant]
     Indication: PAIN
     Dosage: 25 MG, 1 IN 1 D
     Route: 048
  9. TRAZODONE [Concomitant]
     Indication: INSOMNIA
     Dosage: 100 MG, 1 IN 1 D
     Route: 048
  10. WARFARIN [Concomitant]
     Indication: PULMONARY EMBOLISM
     Dosage: 10 MG, 1 IN 1 D
     Route: 048
     Dates: start: 20120501, end: 20120501
  11. WARFARIN [Concomitant]
     Dosage: 7.5 MG, 1 IN 1 D
     Route: 048
     Dates: start: 20120501
  12. NASONEX [Concomitant]
     Indication: SEASONAL ALLERGY
     Dosage: 440 UG,(220MCG, 2IN 1D)
     Route: 045
  13. MIRALAX [Concomitant]
     Indication: CONSTIPATION
     Dosage: UNK
     Route: 048
  14. DILANTIN [Concomitant]
     Indication: CONVULSION
     Dosage: 400 MG, 1 IN 1 D
     Dates: end: 20120604
  15. MAGNESIUM CITRATE [Concomitant]
     Indication: CONSTIPATION
     Dosage: UNK, AS NEEDED
     Route: 048
  16. DANAZOL [Concomitant]
     Indication: HEREDITARY ANGIOEDEMA
     Dosage: 100 MG, 2 IN 1 D
     Route: 048
  17. FIORICET [Concomitant]
     Indication: MIGRAINE
     Dosage: 325/50/50, UNK
  18. IBUPROFEN [Concomitant]
     Dosage: 200 MG, AS NEEDED
  19. SOMA [Concomitant]
     Indication: PAIN
  20. OXYCODONE [Concomitant]
     Indication: PAIN
     Dosage: 5 MG, AS NEEDED
     Route: 048
  21. PHENARGAN [Concomitant]
     Dosage: 25 MG, AS NEEDED
     Route: 048
  22. PREVACID [Concomitant]
     Indication: GASTROOESOPHAGEAL REFLUX DISEASE
     Dosage: 30 MG, 1 IN 1 D
     Route: 048
  23. METAMUCIL-2 [Concomitant]
     Indication: CONSTIPATION
     Dosage: UNK
     Route: 048
  24. FERROUS GLUCONATE [Concomitant]
     Dosage: 1 IN 1 D
  25. COLACE [Concomitant]
     Indication: CONSTIPATION
     Dosage: 100 MG, 1 IN 1 D
     Route: 048
  26. ASMANEX TWISTHALER [Concomitant]
     Indication: ASTHMA
     Dosage: 220 UG, 2 IN 1D
  27. WARFARIN [Concomitant]
     Indication: DEEP VEIN THROMBOSIS
     Dosage: 5 MG, 1 IN 1 D
     Route: 048
     Dates: end: 20120501
  28. SPIRIVA [Concomitant]
     Indication: ASTHMA
     Dosage: 18 UG, 1 IN 1 D
     Route: 045
  29. SOMA [Concomitant]
     Indication: MUSCLE RELAXANT THERAPY
     Dosage: 1050 MG (350 MG, 3 IN 1 D)
     Route: 048
  30. DULCOLAX [Concomitant]
     Indication: FAECES HARD
     Dosage: UNK
     Route: 048
  31. EPIPEN [Concomitant]
     Indication: HYPERSENSITIVITY
     Dosage: 0.3 MG, AS NEEDED
  32. ALBUTEROL [Concomitant]
     Indication: ASTHMA
     Dosage: 90 UG, 2 PUFFS DAILY AS NEEDED
     Route: 055
  33. DILAUDID [Concomitant]
     Indication: PAIN
     Dosage: 2 MG, AS NEEDED
  34. NORTRIPTYLINE [Concomitant]
     Indication: INSOMNIA
  35. PHENARGAN [Concomitant]
     Indication: NAUSEA
     Dosage: 25 MG, AS NEEDED
     Route: 054
  36. ZOFRAN [Concomitant]
     Indication: NAUSEA
     Dosage: 4 MG, AS NEEDED
  37. TYLENOL [Concomitant]
     Dosage: 500 MG, AS NEEDED
  38. PROBIOTICS [Concomitant]
     Indication: DISBACTERIOSIS
     Dosage: 1 IN 1 D
     Route: 048

REACTIONS (5)
  - PANCREATITIS [None]
  - TRANSAMINASES INCREASED [None]
  - URINARY TRACT INFECTION [None]
  - INAPPROPRIATE SCHEDULE OF DRUG ADMINISTRATION [None]
  - HEREDITARY ANGIOEDEMA [None]
